FAERS Safety Report 7279192-5 (Version None)
Quarter: 2011Q1

REPORT INFORMATION
  Report Type: 
  Country: None (occurrence: None)
  Receive Date: 20110207
  Receipt Date: 20110125
  Transmission Date: 20110831
  Serious: Yes (Other)
  Sender: FDA-Public Use
  Company Number: NL-MYLANLABS-2011S1001681

PATIENT
  Age: 71 Year
  Sex: Female

DRUGS (1)
  1. LISINOPRIL [Suspect]
     Indication: HYPERTENSION
     Dosage: 1X DAAGS 1 TABLET
     Route: 048
     Dates: start: 20101129, end: 20110105

REACTIONS (2)
  - ANOSMIA [None]
  - AGEUSIA [None]
